FAERS Safety Report 6882471-4 (Version None)
Quarter: 2010Q3

REPORT INFORMATION
  Report Type: 
  Country: None (occurrence: None)
  Receive Date: 20100729
  Receipt Date: 20100722
  Transmission Date: 20110219
  Serious: Yes (Death, Hospitalization)
  Sender: FDA-Public Use
  Company Number: US-JNJCH-200111-1702

PATIENT
  Sex: Male

DRUGS (3)
  1. BENADRYL [Suspect]
     Dosage: TEXT:UNKNOWN
     Route: 048
  2. ZOLOFT [Suspect]
     Dosage: TEXT:UNKNOWN
     Route: 065
  3. HALDOL [Suspect]
     Dosage: TEXT:3 MG
     Route: 048

REACTIONS (2)
  - OVERDOSE [None]
  - TARDIVE DYSKINESIA [None]
